FAERS Safety Report 8138678-1 (Version None)
Quarter: 2012Q1

REPORT INFORMATION
  Report Type: 
  Country: None (occurrence: None)
  Receive Date: 20120215
  Receipt Date: 20120203
  Transmission Date: 20120608
  Serious: Yes (Death, Hospitalization, Disabling)
  Sender: FDA-Public Use
  Company Number: PT-ROCHE-647417

PATIENT
  Sex: Male

DRUGS (8)
  1. OXYBUPROCAINE HYDROCHLORIDE [Concomitant]
     Indication: ANAESTHESIA
     Dosage: DOSE: 1 GTT, FREQUENCY: DAILY.
     Route: 047
     Dates: start: 20090717, end: 20090717
  2. POVIDONE IODINE [Concomitant]
     Indication: INFECTION PROPHYLAXIS
     Dosage: DOSE: 1 UNITARY DOSE, FREQUENCY: DAILY.
     Route: 047
     Dates: start: 20090717, end: 20090717
  3. LISINOPRIL AND HYDROCHLOROTHIAZIDE [Concomitant]
     Indication: HYPERTENSION
     Dosage: FREQUENCY: DAILY.
     Route: 048
  4. NORFLOXACIN [Concomitant]
     Indication: PROPHYLAXIS
     Dosage: DOSE: 1 UNITARY DOSE, FREQUENCY: DAILY.
     Route: 047
     Dates: start: 20090717, end: 20090717
  5. AVASTIN [Suspect]
     Indication: DIABETIC RETINOPATHY
     Dosage: DRUG NAME REPORTED AS AVASTIN - CONCENTRATE SOLUTION FOR INFUSION - 25 MG/ML.
     Route: 031
     Dates: start: 20090717, end: 20090717
  6. ERYTHROMYCIN [Concomitant]
     Indication: PERFORATED ULCER
     Dosage: FREQUENCY: DAILY.
     Route: 048
  7. HUMAN INSULIN [Concomitant]
     Indication: TYPE 2 DIABETES MELLITUS
     Dosage: DOSE: UNKNOWN. FREQUENCY: DAILY.
     Route: 058
  8. LEVOFLOXACIN HEMIHYDRATE [Concomitant]
     Indication: PROPHYLAXIS
     Dosage: DOSE: 4 GTT, FREQUENCY: DAILY
     Route: 047

REACTIONS (8)
  - ENDOPHTHALMITIS [None]
  - VISUAL ACUITY REDUCED [None]
  - EYELID PAIN [None]
  - CONJUNCTIVAL HYPERAEMIA [None]
  - PURULENT DISCHARGE [None]
  - EYELID OEDEMA [None]
  - CORNEAL OEDEMA [None]
  - DEATH [None]
